FAERS Safety Report 13712754 (Version 1)
Quarter: 2017Q3

REPORT INFORMATION
  Report Type: Spontaneous
  Country: SE (occurrence: SE)
  Receive Date: 20170703
  Receipt Date: 20170703
  Transmission Date: 20171127
  Serious: Yes (Hospitalization)
  Sender: FDA-Public Use
  Company Number: SE-TEVA-780395ACC

PATIENT
  Age: 66 Year
  Sex: Female

DRUGS (9)
  1. NOVORAPID [Concomitant]
     Active Substance: INSULIN ASPART
  2. NITROLINGUAL [Concomitant]
     Active Substance: NITROGLYCERIN
  3. METFORMIN [Concomitant]
     Active Substance: METFORMIN HYDROCHLORIDE
  4. ENALAPRIL [Concomitant]
     Active Substance: ENALAPRIL
  5. ATORVASTATIN ACTAVIS 40 MG FILMDRAGERAD TABLETT [Suspect]
     Active Substance: ATORVASTATIN
     Dosage: 40 MILLIGRAM DAILY;
     Route: 048
     Dates: start: 201704, end: 20170517
  6. TROMBYL 75 MG TABLETT [Suspect]
     Active Substance: ASPIRIN
     Dosage: 75 MILLIGRAM DAILY;
     Route: 048
     Dates: start: 201704
  7. CLOPIDOGREL [Concomitant]
     Active Substance: CLOPIDOGREL BISULFATE
  8. BISOPROLOL [Concomitant]
     Active Substance: BISOPROLOL
  9. HUMULIN N [Concomitant]
     Active Substance: INSULIN HUMAN

REACTIONS (2)
  - Duodenal ulcer [Not Recovered/Not Resolved]
  - Cholestasis [Not Recovered/Not Resolved]

NARRATIVE: CASE EVENT DATE: 201705
